FAERS Safety Report 23405259 (Version 5)
Quarter: 2024Q4

REPORT INFORMATION
  Report Type: Report from Study
  Country: BR (occurrence: BR)
  Receive Date: 20240116
  Receipt Date: 20241122
  Transmission Date: 20250114
  Serious: Yes (Other)
  Sender: NOVARTIS
  Company Number: BR-002147023-NVSC2024BR007951

PATIENT
  Age: 68 Year
  Sex: Female

DRUGS (5)
  1. KISQALI [Suspect]
     Active Substance: RIBOCICLIB
     Indication: Breast cancer
     Dosage: 3 DOSAGE FORM, QD
     Route: 065
  2. KISQALI [Suspect]
     Active Substance: RIBOCICLIB
     Dosage: 2 DOSAGE FORM, UNKNOWN (DOSE REDUCED)
     Route: 065
  3. KISQALI [Suspect]
     Active Substance: RIBOCICLIB
     Dosage: UNK
     Route: 065
     Dates: start: 20240402
  4. KISQALI [Suspect]
     Active Substance: RIBOCICLIB
     Dosage: UNK
     Route: 065
  5. KISQALI [Suspect]
     Active Substance: RIBOCICLIB
     Dosage: 2 DOSAGE FORM, QD
     Route: 065

REACTIONS (19)
  - Bone cancer [Unknown]
  - Feeling abnormal [Unknown]
  - Visual impairment [Not Recovered/Not Resolved]
  - Confusional state [Unknown]
  - Reading disorder [Unknown]
  - Decreased immune responsiveness [Unknown]
  - Malaise [Unknown]
  - COVID-19 [Recovered/Resolved]
  - Platelet count decreased [Unknown]
  - Pain [Unknown]
  - COVID-19 [Recovered/Resolved]
  - Pruritus [Recovering/Resolving]
  - Back pain [Unknown]
  - Head discomfort [Not Recovered/Not Resolved]
  - Stress [Unknown]
  - Memory impairment [Unknown]
  - Asthenia [Unknown]
  - Vision blurred [Unknown]
  - Product dose omission issue [Unknown]

NARRATIVE: CASE EVENT DATE: 20231225
